FAERS Safety Report 16878841 (Version 2)
Quarter: 2019Q4

REPORT INFORMATION
  Report Type: Spontaneous
  Country: US (occurrence: US)
  Receive Date: 20191002
  Receipt Date: 20191209
  Transmission Date: 20200122
  Serious: No
  Sender: FDA-Public Use
  Company Number: US-009507513-1909USA007306

PATIENT
  Age: 38 Year
  Sex: Female
  Weight: 145.58 kg

DRUGS (2)
  1. NEXPLANON [Suspect]
     Active Substance: ETONOGESTREL
     Dosage: 1 ROD, LEFT ARM
     Route: 059
     Dates: start: 20190911, end: 20190918
  2. NEXPLANON [Suspect]
     Active Substance: ETONOGESTREL
     Dosage: 1 IMPLANT
     Route: 059
     Dates: start: 20160830, end: 20190911

REACTIONS (4)
  - Medical device site discomfort [Recovering/Resolving]
  - Implant site pain [Recovered/Resolved]
  - Device kink [Recovered/Resolved]
  - Incorrect product administration duration [Unknown]

NARRATIVE: CASE EVENT DATE: 20190831
